FAERS Safety Report 24086684 (Version 1)
Quarter: 2024Q3

REPORT INFORMATION
  Report Type: Spontaneous
  Country: US (occurrence: US)
  Receive Date: 20240713
  Receipt Date: 20240713
  Transmission Date: 20241017
  Serious: Yes (Other)
  Sender: JOHNSON AND JOHNSON
  Company Number: US-JNJFOC-20240717667

PATIENT
  Age: 62 Year
  Sex: Male
  Weight: 100.7 kg

DRUGS (16)
  1. OPSUMIT [Suspect]
     Active Substance: MACITENTAN
     Indication: Product used for unknown indication
     Route: 048
  2. TYVASO DPI [Suspect]
     Active Substance: TREPROSTINIL
     Indication: Pulmonary arterial hypertension
     Dosage: TREPROSTINIL INHALATION POWDER?DRY POWDER, 64 UG
     Route: 065
     Dates: start: 20240226
  3. MINERALS\VITAMINS [Concomitant]
     Active Substance: MINERALS\VITAMINS
  4. ROSUVASTATIN CALCIUM [Concomitant]
     Active Substance: ROSUVASTATIN CALCIUM
  5. MAGNESIUM CITRATE [Concomitant]
     Active Substance: MAGNESIUM CITRATE
  6. NOVOLIN R [Concomitant]
     Active Substance: INSULIN HUMAN
  7. VITAMIN D3 [Concomitant]
     Active Substance: CHOLECALCIFEROL
  8. SILDENAFIL CITRATE [Concomitant]
     Active Substance: SILDENAFIL CITRATE
  9. NEPAFENAC;PREDNISOLONE [Concomitant]
  10. SPIRONOLACTONE [Concomitant]
     Active Substance: SPIRONOLACTONE
  11. LISINOPRIL [Concomitant]
     Active Substance: LISINOPRIL
  12. ZINC [Concomitant]
     Active Substance: ZINC
  13. FUROSEMIDE [Concomitant]
     Active Substance: FUROSEMIDE
  14. AMLODIPINE BESYLATE [Concomitant]
     Active Substance: AMLODIPINE BESYLATE
  15. LEVETIRACETAM [Concomitant]
     Active Substance: LEVETIRACETAM
  16. VITAMIN B COMPLEX [Concomitant]
     Active Substance: CYANOCOBALAMIN\DEXPANTHENOL\NIACINAMIDE\PYRIDOXINE HYDROCHLORIDE\RIBOFLAVIN 5^-PHOSPHATE SODIUM\THIA

REACTIONS (6)
  - Oxygen saturation decreased [Recovering/Resolving]
  - Weight decreased [Unknown]
  - Illness [Unknown]
  - Dyspnoea [Recovering/Resolving]
  - Decreased appetite [Unknown]
  - Product dose omission issue [Unknown]
